FAERS Safety Report 9816678 (Version 1)
Quarter: 2014Q1

REPORT INFORMATION
  Report Type: Spontaneous
  Country: US (occurrence: US)
  Receive Date: 20140114
  Receipt Date: 20140114
  Transmission Date: 20141002
  Serious: No
  Sender: FDA-Public Use
  Company Number: US-ENDO PHARMACEUTICALS INC.-ENDC20130013

PATIENT
  Sex: Male

DRUGS (1)
  1. ENDOCET 7.5MG/500MG [Suspect]
     Indication: PAIN
     Dosage: 7.5/500 MG
     Route: 048

REACTIONS (1)
  - Drug ineffective [Unknown]
